FAERS Safety Report 20606585 (Version 1)
Quarter: 2022Q1

REPORT INFORMATION
  Report Type: Spontaneous
  Country: US (occurrence: None)
  Receive Date: 20220316
  Receipt Date: 20220316
  Transmission Date: 20220423
  Serious: Yes (Other)
  Sender: FDA-Public Use
  Company Number: None

PATIENT
  Age: 57 Year
  Sex: Female
  Weight: 65.77 kg

DRUGS (5)
  1. TAFINLAR [Suspect]
     Active Substance: DABRAFENIB MESYLATE
     Indication: Malignant melanoma
     Dosage: FREQUENCY : TWICE A DAY;?
     Route: 048
     Dates: start: 20220222, end: 20220312
  2. MEKINIST [Suspect]
     Active Substance: TRAMETINIB DIMETHYL SULFOXIDE
     Indication: Malignant melanoma
     Dosage: FREQUENCY : DAILY;?
     Route: 048
     Dates: start: 20220222, end: 20220312
  3. FAMOTIDINE [Concomitant]
     Active Substance: FAMOTIDINE
  4. ALLEGRA-D 12HR [Concomitant]
  5. ASPIRIN 325MG EC [Concomitant]

REACTIONS (4)
  - Renal pain [None]
  - Hepatic enzyme increased [None]
  - Renal impairment [None]
  - Abdominal pain [None]

NARRATIVE: CASE EVENT DATE: 20220312
